FAERS Safety Report 4262978-9 (Version None)
Quarter: 2004Q1

REPORT INFORMATION
  Report Type: 
  Country: None (occurrence: None)
  Receive Date: 20040102
  Receipt Date: 20040102
  Transmission Date: 20041129
  Serious: Yes (Other)
  Sender: FDA-Public Use
  Company Number: None

PATIENT
  Sex: Male
  Weight: 59.8748 kg

DRUGS (1)
  1. LOVASTATIN [Suspect]
     Dosage: 20 MG PO QPM
     Route: 048

REACTIONS (3)
  - ANGIONEUROTIC OEDEMA [None]
  - HYPOAESTHESIA [None]
  - OEDEMA MOUTH [None]
